FAERS Safety Report 4453693-7 (Version None)
Quarter: 2004Q3

REPORT INFORMATION
  Report Type: 
  Country: None (occurrence: None)
  Receive Date: 20040902
  Receipt Date: 20040605
  Transmission Date: 20050211
  Serious: No
  Sender: FDA-Public Use
  Company Number: 200418288BWH

PATIENT
  Age: 66 Year
  Sex: Male
  Weight: 104.3273 kg

DRUGS (8)
  1. LEVITRA [Suspect]
     Dosage: 10 MG ; 20 MG : OW, ORAL
     Route: 048
     Dates: start: 20040101, end: 20040301
  2. LEVITRA [Suspect]
     Dosage: 10 MG ; 20 MG : OW, ORAL
     Route: 048
     Dates: start: 20040401, end: 20040601
  3. VIAGRA [Concomitant]
  4. ASPIRIN [Concomitant]
  5. DHEA [Concomitant]
  6. ZESTRIL [Concomitant]
  7. BRETHINE [Concomitant]
  8. CIALIS [Concomitant]

REACTIONS (2)
  - ERECTILE DYSFUNCTION [None]
  - HEART RATE INCREASED [None]
